FAERS Safety Report 6924580-7 (Version None)
Quarter: 2010Q3

REPORT INFORMATION
  Report Type: 
  Country: None (occurrence: None)
  Receive Date: 20100816
  Receipt Date: 20100811
  Transmission Date: 20110219
  Serious: Yes (Other)
  Sender: FDA-Public Use
  Company Number: US-CEPHALON-2010004235

PATIENT
  Age: 38 Year
  Sex: Male

DRUGS (1)
  1. AMRIX [Suspect]
     Indication: MUSCLE SPASMS
     Route: 048

REACTIONS (3)
  - ASTHENIA [None]
  - FATIGUE [None]
  - SUICIDAL IDEATION [None]
